FAERS Safety Report 8108007-8 (Version None)
Quarter: 2012Q1

REPORT INFORMATION
  Report Type: 
  Country: None (occurrence: None)
  Receive Date: 20120202
  Receipt Date: 20120125
  Transmission Date: 20120608
  Serious: Yes (Hospitalization, Other)
  Sender: FDA-Public Use
  Company Number: US-ACTELION-A-US2011-58937

PATIENT

DRUGS (3)
  1. TRACLEER [Suspect]
     Indication: PULMONARY ARTERIAL HYPERTENSION
     Dosage: 125 MG, BID
     Route: 048
     Dates: start: 20110901
  2. ADCIRCA [Concomitant]
  3. CALCIUM CHANNEL BLOCKERS [Concomitant]

REACTIONS (6)
  - OEDEMA PERIPHERAL [None]
  - RIB FRACTURE [None]
  - NO THERAPEUTIC RESPONSE [None]
  - FALL [None]
  - PNEUMONIA [None]
  - DYSPNOEA [None]
